FAERS Safety Report 11836009 (Version 1)
Quarter: 2015Q4

REPORT INFORMATION
  Report Type: Spontaneous
  Country: US (occurrence: US)
  Receive Date: 20151215
  Receipt Date: 20151215
  Transmission Date: 20160305
  Serious: No
  Sender: FDA-Public Use
  Company Number: US-WATSON-2015-13415

PATIENT
  Age: 54 Year
  Sex: Male
  Weight: 79.4 kg

DRUGS (2)
  1. MINOXIDIL (AMALLC) [Suspect]
     Active Substance: MINOXIDIL
     Indication: HAIR DISORDER
     Dosage: UNK, BID
     Route: 065
     Dates: start: 20150528, end: 20150612
  2. MINOXIDIL (AMALLC) [Suspect]
     Active Substance: MINOXIDIL
     Dosage: UNK, UNKNOWN
     Route: 065
     Dates: start: 201502, end: 201505

REACTIONS (2)
  - Urticaria [Unknown]
  - Rash [Unknown]

NARRATIVE: CASE EVENT DATE: 20150612
